FAERS Safety Report 4966112-9 (Version None)
Quarter: 2006Q2

REPORT INFORMATION
  Report Type: 
  Country: None (occurrence: None)
  Receive Date: 20060403
  Receipt Date: 20060303
  Transmission Date: 20061013
  Serious: Yes (Hospitalization)
  Sender: FDA-Public Use
  Company Number: 2006041929

PATIENT
  Age: 67 Year
  Sex: Male

DRUGS (4)
  1. LIPITOR [Suspect]
     Indication: ILL-DEFINED DISORDER
     Dosage: 10 MG (1 IN 1 D), ORAL
     Route: 048
  2. MONTELUKAST SODIUM [Concomitant]
  3. SALMETEROL [Concomitant]
  4. BENZBROMARONE [Concomitant]

REACTIONS (3)
  - CHROMATURIA [None]
  - HYPOAESTHESIA [None]
  - MYOCARDIAL INFARCTION [None]
